FAERS Safety Report 9160661 (Version 2)
Quarter: 2013Q3

REPORT INFORMATION
  Report Type: Spontaneous
  Country: US (occurrence: US)
  Receive Date: 20130313
  Receipt Date: 20130807
  Transmission Date: 20140515
  Serious: Yes (Other)
  Sender: FDA-Public Use
  Company Number: US-ABBOTT-12P-163-0970834-00

PATIENT
  Sex: 0

DRUGS (3)
  1. DEPAKOTE [Suspect]
     Indication: PRODUCT USED FOR UNKNOWN INDICATION
     Dates: start: 199809
  2. DEPAKOTE [Interacting]
  3. GLEEVEC [Interacting]
     Indication: PRODUCT USED FOR UNKNOWN INDICATION

REACTIONS (9)
  - Gastrointestinal stromal tumour [Unknown]
  - Deafness [Unknown]
  - Drug interaction [Unknown]
  - Suicidal ideation [Unknown]
  - Panic attack [Unknown]
  - Agitation [Unknown]
  - Dyspnoea [Unknown]
  - Tremor [Unknown]
  - Anxiety [Unknown]
